FAERS Safety Report 17273681 (Version 1)
Quarter: 2020Q1

REPORT INFORMATION
  Report Type: Spontaneous
  Country: US (occurrence: US)
  Receive Date: 20200115
  Receipt Date: 20200115
  Transmission Date: 20200409
  Serious: Yes (Hospitalization)
  Sender: FDA-Public Use
  Company Number: None

PATIENT
  Age: 28 Year
  Sex: Female
  Weight: 57.15 kg

DRUGS (1)
  1. XOFLUZA [Suspect]
     Active Substance: BALOXAVIR MARBOXIL
     Indication: INFLUENZA
     Dosage: ?          OTHER FREQUENCY:1 TIME DOSE;?
     Route: 048
     Dates: start: 20191213, end: 20191213

REACTIONS (2)
  - Gastrointestinal inflammation [None]
  - Appendicitis [None]

NARRATIVE: CASE EVENT DATE: 20191220
